FAERS Safety Report 7726892-6 (Version None)
Quarter: 2011Q3

REPORT INFORMATION
  Report Type: 
  Country: None (occurrence: None)
  Receive Date: 20110902
  Receipt Date: 20110831
  Transmission Date: 20111222
  Serious: Yes (Other)
  Sender: FDA-Public Use
  Company Number: FR-MERCK-1012FRA00031

PATIENT
  Age: 62 Year
  Sex: Female
  Weight: 87 kg

DRUGS (10)
  1. ATORVASTATIN CALCIUM [Concomitant]
     Route: 065
  2. ACETAMINOPHEN AND CODEINE PHOSPHATE [Concomitant]
     Route: 065
  3. METFORMIN HYDROCHLORIDE [Concomitant]
     Route: 065
  4. CHLORAMBUCIL [Concomitant]
     Route: 065
  5. OLMESARTAN MEDOXOMIL [Concomitant]
     Route: 048
  6. PREGABALIN [Concomitant]
     Route: 065
  7. JANUVIA [Suspect]
     Indication: TYPE 2 DIABETES MELLITUS
     Route: 048
     Dates: start: 20090101, end: 20100101
  8. JANUMET [Suspect]
     Indication: TYPE 2 DIABETES MELLITUS
     Route: 048
     Dates: start: 20100101, end: 20110608
  9. PANTOPRAZOLE SODIUM [Concomitant]
     Route: 065
  10. ALPRAZOLAM [Concomitant]
     Route: 048

REACTIONS (16)
  - ACNE [None]
  - DECREASED APPETITE [None]
  - MUSCLE FATIGUE [None]
  - AMYOTROPHY [None]
  - FALL [None]
  - MUSCLE SPASMS [None]
  - HYPOTONIA [None]
  - ASTHENIA [None]
  - NEUROPATHY PERIPHERAL [None]
  - ABDOMINAL PAIN [None]
  - CARPAL TUNNEL SYNDROME [None]
  - PARAESTHESIA [None]
  - CUBITAL TUNNEL SYNDROME [None]
  - INSOMNIA [None]
  - WALKING DISABILITY [None]
  - OEDEMA PERIPHERAL [None]
